FAERS Safety Report 12480823 (Version 1)
Quarter: 2016Q2

REPORT INFORMATION
  Report Type: Spontaneous
  Country: JP (occurrence: JP)
  Receive Date: 20160620
  Receipt Date: 20160620
  Transmission Date: 20160815
  Serious: Yes (Hospitalization, Other)
  Sender: FDA-Public Use
  Company Number: JP-PFIZER INC-2016256099

PATIENT
  Age: 31 Year
  Sex: Male
  Weight: 89.1 kg

DRUGS (6)
  1. LEUCOVORIN /00566701/ [Concomitant]
     Active Substance: LEUCOVORIN
     Dosage: 120 MG, UNK
     Route: 041
     Dates: start: 20160511, end: 20160513
  2. LEUCOVORIN /00566701/ [Concomitant]
     Active Substance: LEUCOVORIN
     Dosage: 15 MG, UNK
     Route: 041
     Dates: start: 20160516, end: 20160517
  3. LEUCOVORIN /00566701/ [Concomitant]
     Active Substance: LEUCOVORIN
     Indication: DRUG THERAPY
     Dosage: 30 MG, UNK
     Route: 041
     Dates: start: 20160511, end: 20160511
  4. LEUCOVORIN /00566701/ [Concomitant]
     Active Substance: LEUCOVORIN
     Dosage: 60 MG, UNK
     Route: 041
     Dates: start: 20160511, end: 20160511
  5. LEUCOVORIN /00566701/ [Concomitant]
     Active Substance: LEUCOVORIN
     Dosage: 30 MG, UNK
     Route: 041
     Dates: start: 20160514, end: 20160516
  6. METHOTREXATE [Suspect]
     Active Substance: METHOTREXATE
     Indication: CHEMOTHERAPY
     Dosage: 17280 MG, 1X/DAY
     Route: 041
     Dates: start: 20160510

REACTIONS (4)
  - Drug level increased [Recovered/Resolved]
  - Septic shock [Unknown]
  - Blood creatinine increased [Recovering/Resolving]
  - Urinary tract infection [Unknown]

NARRATIVE: CASE EVENT DATE: 20160511
